FAERS Safety Report 9043431 (Version 1)
Quarter: 2013Q1

REPORT INFORMATION
  Report Type: Report from Study
  Country: US (occurrence: US)
  Receive Date: 20130129
  Receipt Date: 20130129
  Transmission Date: 20140127
  Serious: No
  Sender: FDA-Public Use
  Company Number: US-ABBOTT-12P-163-0911415-00

PATIENT
  Age: 22 Year
  Sex: Female

DRUGS (3)
  1. HUMIRA 40 MG/0.8 ML PEN [Suspect]
     Indication: PSORIASIS
     Dosage: LOADING DOSE
     Dates: start: 20120302
  2. BIRTH CONTROL [Concomitant]
     Indication: PRODUCT USED FOR UNKNOWN INDICATION
  3. UNKNOWN TOPICAL MEDICATION [Concomitant]
     Indication: PRODUCT USED FOR UNKNOWN INDICATION

REACTIONS (5)
  - Vomiting [Not Recovered/Not Resolved]
  - Headache [Not Recovered/Not Resolved]
  - Chills [Not Recovered/Not Resolved]
  - Pyrexia [Not Recovered/Not Resolved]
  - Influenza [Not Recovered/Not Resolved]
